FAERS Safety Report 9140389 (Version 2)
Quarter: 2013Q2

REPORT INFORMATION
  Report Type: Spontaneous
  Country: US (occurrence: US)
  Receive Date: 20130305
  Receipt Date: 20130529
  Transmission Date: 20140414
  Serious: Yes (Death, Hospitalization, Other)
  Sender: FDA-Public Use
  Company Number: US-ELI_LILLY_AND_COMPANY-US201303000694

PATIENT
  Sex: Female

DRUGS (3)
  1. ADCIRCA [Suspect]
     Dosage: UNK UNK, UNKNOWN
     Route: 065
     Dates: start: 2011
  2. REMODULIN [Concomitant]
     Dosage: UNK
     Route: 042
     Dates: start: 20120718, end: 201211
  3. TYVASO [Concomitant]
     Dosage: 9 PUFFS, TID
     Dates: start: 20121107, end: 20121226

REACTIONS (9)
  - Pulmonary hypertension [Fatal]
  - Pulmonary haemorrhage [Unknown]
  - Sepsis [Unknown]
  - Renal failure [Unknown]
  - Blindness transient [Unknown]
  - Hepatic failure [Unknown]
  - Respiratory failure [Unknown]
  - Cardiac failure [Unknown]
  - Bone marrow failure [Unknown]
